FAERS Safety Report 5755928-7 (Version None)
Quarter: 2008Q2

REPORT INFORMATION
  Report Type: 
  Country: None (occurrence: None)
  Receive Date: 20080602
  Receipt Date: 20080521
  Transmission Date: 20081010
  Serious: Yes (Disabling)
  Sender: FDA-Public Use
  Company Number: PT-WYE-H04314008

PATIENT
  Sex: Female

DRUGS (1)
  1. CORDARONE [Suspect]
     Dosage: NOT PROVIDED
     Route: 048

REACTIONS (5)
  - CEREBRAL ATAXIA [None]
  - COGNITIVE DISORDER [None]
  - DISORIENTATION [None]
  - DYSGRAPHIA [None]
  - READING DISORDER [None]
